FAERS Safety Report 21190729 (Version 1)
Quarter: 2022Q3

REPORT INFORMATION
  Report Type: Spontaneous
  Country: US (occurrence: None)
  Receive Date: 20220809
  Receipt Date: 20220809
  Transmission Date: 20221027
  Serious: No
  Sender: FDA-Public Use
  Company Number: None

PATIENT
  Age: 36 Year
  Sex: Male

DRUGS (2)
  1. KOVALTRY [Suspect]
     Active Substance: ANTIHEMOPHILIC FACTOR, HUMAN RECOMBINANT
     Indication: Factor VIII deficiency
     Dosage: OTHER QUANTITY : 3930U ;?FREQUENCY : AS DIRECTED;?
     Route: 042
     Dates: start: 20220720
  2. KOVALTRY [Suspect]
     Active Substance: ANTIHEMOPHILIC FACTOR, HUMAN RECOMBINANT
     Indication: Factor VIII deficiency
     Dosage: OTHER QUANTITY : 3930U;?FREQUENCY : AS DIRECTED;?
     Route: 042
     Dates: start: 20220720

REACTIONS (2)
  - Joint injury [None]
  - Haemorrhage [None]

NARRATIVE: CASE EVENT DATE: 20220730
